FAERS Safety Report 4576047-1 (Version None)
Quarter: 2005Q1

REPORT INFORMATION
  Report Type: 
  Country: None (occurrence: None)
  Receive Date: 20050209
  Receipt Date: 20050202
  Transmission Date: 20050727
  Serious: Yes (Other)
  Sender: FDA-Public Use
  Company Number: PHBS2005GR01832

PATIENT
  Age: 20 Year
  Sex: Male

DRUGS (3)
  1. CYCLOSPORINE [Suspect]
     Indication: RENAL TRANSPLANT
     Dosage: 400 MG/DAY
  2. MEDROL [Concomitant]
     Dosage: 56 MG/DAY
  3. MYCOPHENOLATE MOFETIL [Concomitant]
     Dosage: 1.5 G/DAY

REACTIONS (4)
  - BODY DYSMORPHIC DISORDER [None]
  - DISTURBANCE IN SOCIAL BEHAVIOUR [None]
  - HIRSUTISM [None]
  - MOOD ALTERED [None]
